FAERS Safety Report 26110221 (Version 1)
Quarter: 2025Q4

REPORT INFORMATION
  Report Type: Spontaneous
  Country: US (occurrence: US)
  Receive Date: 20251202
  Receipt Date: 20251202
  Transmission Date: 20260117
  Serious: No
  Sender: GALDERMA
  Company Number: US-GALDERMA-US2025023864

PATIENT

DRUGS (1)
  1. NEMLUVIO [Suspect]
     Active Substance: NEMOLIZUMAB-ILTO
     Indication: Dermatitis atopic
     Dosage: UNK
     Route: 058
     Dates: start: 20251106, end: 20251106

REACTIONS (9)
  - Pruritus [Unknown]
  - Pain [Unknown]
  - Decreased appetite [Unknown]
  - Gait disturbance [Unknown]
  - Eczema [Unknown]
  - Wound [Unknown]
  - Skin weeping [Unknown]
  - Scratch [Unknown]
  - Blister [Unknown]

NARRATIVE: CASE EVENT DATE: 20251111
